FAERS Safety Report 9664847 (Version 5)
Quarter: 2014Q1

REPORT INFORMATION
  Report Type: Spontaneous
  Country: CZ (occurrence: None)
  Receive Date: 20131031
  Receipt Date: 20140318
  Transmission Date: 20141002
  Serious: Yes (Hospitalization, Other)
  Sender: FDA-Public Use
  Company Number: 2013CZ002744

PATIENT
  Age: 82 Year
  Sex: Female
  Weight: 70 kg

DRUGS (12)
  1. PONATINIB (AP24534) TABLET [Suspect]
     Indication: CHRONIC MYELOID LEUKAEMIA
     Route: 048
     Dates: start: 20131009, end: 20131015
  2. CONCOR (BISOPROLOL FURMATE) [Concomitant]
  3. AMLORATIO (AMLODIPINE BESILATE) [Concomitant]
  4. ANOPYRIN (ACETYLSALICYLIC ACID) [Concomitant]
  5. ELENIUM (CHLORDIAZEPOXIDE) [Concomitant]
  6. METFOGAMMA (METFORMIN HYDROCHLORIDE) [Concomitant]
  7. BERODUAL (FENOTEROL HYDROBROMIDE, IPRATROPIUM BROMIDE) [Concomitant]
  8. MIFLONID (BUDESONIDE) [Concomitant]
  9. LITALIR (HYDRIXYCARBAMIDE) [Concomitant]
  10. MILURIT (ALLOPURINOL) [Concomitant]
  11. PERINPA (INDAPAMIDE, PERINDOPRIL ERBUMINE) [Concomitant]
  12. DETRALEX (DIOSMIN, HESPERIDIN) [Concomitant]

REACTIONS (4)
  - C-reactive protein increased [None]
  - Pyrexia [None]
  - Infection [None]
  - Transient ischaemic attack [None]
